FAERS Safety Report 19776607 (Version 1)
Quarter: 2021Q3

REPORT INFORMATION
  Report Type: Spontaneous
  Country: CA (occurrence: CA)
  Receive Date: 20210902
  Receipt Date: 20210902
  Transmission Date: 20211014
  Serious: Yes (Other)
  Sender: FDA-Public Use
  Company Number: CA-TEVA-2021-CA-1948098

PATIENT
  Age: 11 Year
  Sex: Female

DRUGS (7)
  1. METHYLPREDNISOLONE SODIUM SUCCINATE. [Suspect]
     Active Substance: METHYLPREDNISOLONE SODIUM SUCCINATE
     Indication: ENGRAFTMENT SYNDROME
     Dosage: 1 MG/KG DAILY;
     Route: 042
  2. MYCOPHENOLIC ACID. [Suspect]
     Active Substance: MYCOPHENOLIC ACID
     Indication: IMMUNOSUPPRESSION
     Route: 065
  3. CICLOSPORIN [Suspect]
     Active Substance: CYCLOSPORINE
     Indication: GRAFT VERSUS HOST DISEASE
     Route: 065
  4. ENBREL [Suspect]
     Active Substance: ETANERCEPT
     Indication: IMMUNOSUPPRESSION
     Route: 058
  5. METHOTREXATE. [Suspect]
     Active Substance: METHOTREXATE
     Indication: GRAFT VERSUS HOST DISEASE
     Route: 065
  6. BUDESONIDE. [Suspect]
     Active Substance: BUDESONIDE
     Indication: IMMUNOSUPPRESSION
     Route: 048
  7. BECLOMETHASONE [Suspect]
     Active Substance: BECLOMETHASONE
     Indication: IMMUNOSUPPRESSION
     Route: 048

REACTIONS (4)
  - Product use in unapproved indication [Unknown]
  - Incorrect route of product administration [Unknown]
  - Graft versus host disease in gastrointestinal tract [Unknown]
  - Graft versus host disease in skin [Unknown]
